FAERS Safety Report 19176506 (Version 4)
Quarter: 2021Q4

REPORT INFORMATION
  Report Type: Other
  Country: JP (occurrence: JP)
  Receive Date: 20210424
  Receipt Date: 20211224
  Transmission Date: 20220304
  Serious: Yes (Other)
  Sender: FDA-Public Use
  Company Number: JP-CHUGAI-A2021016835ROCHE

PATIENT
  Age: 83 Year
  Sex: Male
  Weight: 48 kg

DRUGS (2)
  1. ENTRECTINIB [Suspect]
     Active Substance: ENTRECTINIB
     Indication: Non-small cell lung cancer
     Route: 048
     Dates: start: 20210210, end: 20210324
  2. ENTRECTINIB [Suspect]
     Active Substance: ENTRECTINIB
     Route: 048
     Dates: start: 20210402, end: 20210514

REACTIONS (1)
  - Right ventricular failure [Recovered/Resolved]

NARRATIVE: CASE EVENT DATE: 20210318
